FAERS Safety Report 25816688 (Version 4)
Quarter: 2025Q4

REPORT INFORMATION
  Report Type: Report from Study
  Country: CA (occurrence: CA)
  Receive Date: 20250918
  Receipt Date: 20251215
  Transmission Date: 20260117
  Serious: Yes (Hospitalization, Other)
  Sender: ALEXION PHARMACEUTICALS
  Company Number: CA-AstraZeneca-CH-00916236A

PATIENT
  Age: 81 Year
  Sex: Female

DRUGS (19)
  1. BENRALIZUMAB [Suspect]
     Active Substance: BENRALIZUMAB
     Indication: Asthma
     Dosage: 30 MILLIGRAM
  2. BENRALIZUMAB [Suspect]
     Active Substance: BENRALIZUMAB
     Dosage: UNK
  3. BENRALIZUMAB [Suspect]
     Active Substance: BENRALIZUMAB
     Dosage: UNK
  4. PREDNISONE [Concomitant]
     Active Substance: PREDNISONE
     Dosage: 5MG, OD
     Route: 065
  5. TRELEGY ELLIPTA [Concomitant]
     Active Substance: FLUTICASONE FUROATE\UMECLIDINIUM BROMIDE\VILANTEROL TRIFENATATE
     Dosage: 100MCG 1INH OD
     Route: 065
  6. VENTOLIN [Concomitant]
     Active Substance: ALBUTEROL SULFATE
     Dosage: PRN
     Route: 065
  7. AMLODIPINE [Concomitant]
     Active Substance: AMLODIPINE BESYLATE
     Dosage: 5 MG P.O. NIGHTLY
     Route: 065
  8. ATORVASTATIN [Concomitant]
     Active Substance: ATORVASTATIN
     Dosage: 40 MG NIGHTLY
     Route: 065
  9. BETAHISTINE [Concomitant]
     Active Substance: BETAHISTINE
     Dosage: 16 MILLIGRAM, BID
     Route: 061
  10. EZETIMIBE [Concomitant]
     Active Substance: EZETIMIBE
     Dosage: 10 MG NIGHTLY
     Route: 065
  11. FERROUS FUMARATE [Concomitant]
     Active Substance: FERROUS FUMARATE
     Dosage: 300 MILLIGRAM, QD
     Route: 065
  12. IPRATROPIUM BROMIDE [Concomitant]
     Active Substance: IPRATROPIUM BROMIDE
     Indication: Dyspnoea
     Dosage: 20-40 MCG INHALED Q.4 H. P.R.N
     Route: 065
  13. PANTOPRAZOLE [Concomitant]
     Active Substance: PANTOPRAZOLE
     Dosage: 40 MILLIGRAM, QD
     Route: 065
  14. PERINDOPRIL [Concomitant]
     Active Substance: PERINDOPRIL
     Dosage: 8 MILLIGRAM, QD
     Route: 065
  15. ALBUTEROL [Concomitant]
     Active Substance: ALBUTEROL
     Indication: Dyspnoea
     Dosage: 200 - 400 MCG INHALED P.R.N
     Route: 065
  16. SENOKOT [Concomitant]
     Active Substance: SENNOSIDES
     Indication: Constipation
     Dosage: 17.2 MG - 25.8 MG P.O. NIGHTLY P.R.N.
     Route: 065
  17. TRAZODONE [Concomitant]
     Active Substance: TRAZODONE HYDROCHLORIDE
     Dosage: 100 MG P.O. NIGHTLY
     Route: 065
  18. VENLAFAXINE [Concomitant]
     Active Substance: VENLAFAXINE HYDROCHLORIDE
     Dosage: 75 MILLIGRAM, QD
     Route: 065
  19. FASENRA [Concomitant]
     Active Substance: BENRALIZUMAB

REACTIONS (18)
  - Asthma [Unknown]
  - Gastrointestinal infection [Unknown]
  - Influenza [Unknown]
  - Troponin increased [Unknown]
  - Chest pain [Unknown]
  - Diarrhoea haemorrhagic [Unknown]
  - Vomiting [Unknown]
  - Serum ferritin increased [Unknown]
  - Blood iron decreased [Unknown]
  - Acute kidney injury [Unknown]
  - Electrocardiogram QT prolonged [Unknown]
  - Hypertension [Unknown]
  - Abdominal pain [Unknown]
  - Clostridium difficile infection [Unknown]
  - Pneumonia [Unknown]
  - Haematochezia [Unknown]
  - Haemorrhoids [Unknown]
  - Colitis [Unknown]
